FAERS Safety Report 15609466 (Version 3)
Quarter: 2018Q4

REPORT INFORMATION
  Report Type: Spontaneous
  Country: ES (occurrence: ES)
  Receive Date: 20181112
  Receipt Date: 20181129
  Transmission Date: 20190205
  Serious: Yes (Other)
  Sender: FDA-Public Use
  Company Number: ES-BEH-2018096751

PATIENT
  Age: 58 Year
  Sex: Male
  Weight: 80 kg

DRUGS (11)
  1. PRIVIGEN [Suspect]
     Active Substance: HUMAN IMMUNOGLOBULIN G
     Indication: CHRONIC INFLAMMATORY DEMYELINATING POLYRADICULONEUROPATHY
     Dosage: UNK, BIW
     Route: 042
     Dates: start: 201804
  2. PRIVIGEN [Suspect]
     Active Substance: HUMAN IMMUNOGLOBULIN G
     Dosage: UNK
     Route: 042
     Dates: start: 201806
  3. PRIVIGEN [Suspect]
     Active Substance: HUMAN IMMUNOGLOBULIN G
     Dosage: 35 G/DAY QOW
     Route: 042
     Dates: start: 20181016
  4. PRIVIGEN [Suspect]
     Active Substance: HUMAN IMMUNOGLOBULIN G
     Dosage: UNK
     Route: 042
     Dates: start: 20181016
  5. AZATIOPRINA                        /00001502/ [Suspect]
     Active Substance: AZATHIOPRINE
     Dosage: 100 MG, QD
     Route: 065
     Dates: start: 201809, end: 201810
  6. PRIVIGEN [Suspect]
     Active Substance: HUMAN IMMUNOGLOBULIN G
     Dosage: 30 G/DAY QOW
     Route: 042
     Dates: start: 20181113, end: 20181113
  7. PRIVIGEN [Suspect]
     Active Substance: HUMAN IMMUNOGLOBULIN G
     Dosage: UNK
     Route: 042
     Dates: start: 20181016
  8. PRIVIGEN [Suspect]
     Active Substance: HUMAN IMMUNOGLOBULIN G
     Dosage: 0.5 G/KG QOW
     Route: 042
     Dates: start: 201808, end: 201810
  9. PRIVIGEN [Suspect]
     Active Substance: HUMAN IMMUNOGLOBULIN G
     Dosage: 0.4 G/KG QD
     Route: 042
     Dates: start: 201808
  10. AZATIOPRINA                        /00001502/ [Suspect]
     Active Substance: AZATHIOPRINE
     Dosage: 150 MG, QD
     Route: 065
     Dates: start: 201810
  11. AZATIOPRINA /00001502/ [Suspect]
     Active Substance: AZATHIOPRINE
     Indication: CHRONIC INFLAMMATORY DEMYELINATING POLYRADICULONEUROPATHY
     Dosage: 50 MG, QD
     Route: 065
     Dates: start: 201808, end: 201809

REACTIONS (9)
  - Neutropenia [Recovered/Resolved]
  - Ocular icterus [Unknown]
  - Leukopenia [Recovered/Resolved]
  - Abdominal pain [Recovering/Resolving]
  - Discomfort [Recovering/Resolving]
  - Thrombocytopenia [Not Recovered/Not Resolved]
  - Jaundice [Unknown]
  - Chromaturia [Unknown]
  - Intravascular haemolysis [Unknown]

NARRATIVE: CASE EVENT DATE: 201810
